FAERS Safety Report 16538275 (Version 1)
Quarter: 2019Q3

REPORT INFORMATION
  Report Type: Spontaneous
  Country: GB (occurrence: GB)
  Receive Date: 20190708
  Receipt Date: 20190708
  Transmission Date: 20191004
  Serious: Yes (Other)
  Sender: FDA-Public Use
  Company Number: GB-TEVA-2019-GB-1073782

PATIENT
  Sex: Male

DRUGS (1)
  1. ROPINIROLE HYDROCHLORIDE. [Suspect]
     Active Substance: ROPINIROLE HYDROCHLORIDE
     Indication: RESTLESS LEGS SYNDROME
     Dosage: TAKES BETWEEN 0.5-1.5MG DEPENDING ON SEVERITY
     Route: 065

REACTIONS (1)
  - Noninfective sialoadenitis [Recovered/Resolved]

NARRATIVE: CASE EVENT DATE: 2016
